FAERS Safety Report 6563729-5 (Version None)
Quarter: 2010Q1

REPORT INFORMATION
  Report Type: 
  Country: None (occurrence: None)
  Receive Date: 20100130
  Receipt Date: 20091222
  Transmission Date: 20100710
  Serious: No
  Sender: FDA-Public Use
  Company Number: US-ABBOTT-09P-163-0616356-00

PATIENT
  Sex: Female

DRUGS (3)
  1. HUMIRA [Suspect]
     Indication: PSORIASIS
     Route: 058
     Dates: start: 20080501, end: 20080801
  2. HUMIRA [Suspect]
     Dosage: SYRINGES
     Route: 058
     Dates: start: 20090901
  3. VITAMIN TAB [Concomitant]
     Indication: DRUG USE FOR UNKNOWN INDICATION

REACTIONS (5)
  - ARTHRALGIA [None]
  - JOINT SWELLING [None]
  - PAIN [None]
  - POLYMORPHIC ERUPTION OF PREGNANCY [None]
  - RASH PUSTULAR [None]
